FAERS Safety Report 6384651-3 (Version None)
Quarter: 2009Q4

REPORT INFORMATION
  Report Type: 
  Country: None (occurrence: None)
  Receive Date: 20091001
  Receipt Date: 20090922
  Transmission Date: 20100525
  Serious: Yes (Hospitalization)
  Sender: FDA-Public Use
  Company Number: PHEH2009US11487

PATIENT
  Sex: Male

DRUGS (6)
  1. SANDOSTATIN LAR [Suspect]
     Indication: CARCINOID SYNDROME
     Dosage: 20-30 MG, MONTHLY
     Route: 030
     Dates: start: 20080101, end: 20090801
  2. SANDOSTATIN LAR [Suspect]
     Dosage: 30 MG, QMO
     Dates: start: 20090801
  3. BENAZEPRIL HYDROCHLORIDE [Concomitant]
     Dosage: UNK, UNK
  4. COLACE [Concomitant]
     Dosage: UNK, UNK
  5. MOTRIN [Concomitant]
     Dosage: UNK, UNK
  6. ALLEGRA [Concomitant]
     Dosage: UNK, UNK

REACTIONS (10)
  - DEEP VEIN THROMBOSIS [None]
  - INDURATION [None]
  - INJECTION SITE ERYTHEMA [None]
  - INJECTION SITE INDURATION [None]
  - INJECTION SITE INFLAMMATION [None]
  - INJECTION SITE PAIN [None]
  - INJECTION SITE SWELLING [None]
  - INJECTION SITE URTICARIA [None]
  - PULMONARY EMBOLISM [None]
  - URTICARIA [None]
